FAERS Safety Report 18735745 (Version 6)
Quarter: 2021Q3

REPORT INFORMATION
  Report Type: Spontaneous
  Country: US (occurrence: US)
  Receive Date: 20210113
  Receipt Date: 20210705
  Transmission Date: 20211014
  Serious: Yes (Hospitalization, Other)
  Sender: FDA-Public Use
  Company Number: US-PFIZER INC-2021015230

PATIENT
  Age: 76 Year
  Sex: Male

DRUGS (5)
  1. INLYTA [Suspect]
     Active Substance: AXITINIB
     Dosage: 5 MG
     Dates: start: 20201102, end: 20201217
  2. INLYTA [Suspect]
     Active Substance: AXITINIB
     Dosage: 5 MG
     Dates: start: 20210128
  3. COVID?19 VACCINE [Concomitant]
     Dosage: UNK
     Dates: start: 20210116
  4. INLYTA [Suspect]
     Active Substance: AXITINIB
     Dosage: 5 MG
     Dates: start: 20210129, end: 20210621
  5. COVID?19 VACCINE [Concomitant]
     Dosage: UNK
     Dates: start: 20210213

REACTIONS (10)
  - Productive cough [Unknown]
  - Muscular weakness [Unknown]
  - Rectal haemorrhage [Unknown]
  - Arthralgia [Unknown]
  - Dysphonia [Unknown]
  - COVID-19 [Unknown]
  - Illness [Unknown]
  - Haemorrhoids [Unknown]
  - Cough [Unknown]
  - Fatigue [Unknown]

NARRATIVE: CASE EVENT DATE: 20201215
